FAERS Safety Report 7269438-1 (Version None)
Quarter: 2011Q1

REPORT INFORMATION
  Report Type: 
  Country: None (occurrence: None)
  Receive Date: 20110202
  Receipt Date: 20110126
  Transmission Date: 20110831
  Serious: Yes (Hospitalization)
  Sender: FDA-Public Use
  Company Number: US-BRISTOL-MYERS SQUIBB COMPANY-13766258

PATIENT
  Age: 76 Year
  Sex: Female
  Weight: 65 kg

DRUGS (16)
  1. KLOR-CON [Concomitant]
     Route: 048
     Dates: start: 20020101
  2. PREVACID [Concomitant]
     Route: 048
     Dates: start: 20070301
  3. LIDOCAINE HYDROCHLORIDE [Concomitant]
     Route: 048
     Dates: start: 20070412, end: 20070413
  4. LEVOTHYROXINE [Concomitant]
     Route: 048
     Dates: start: 20060101
  5. PACLITAXEL [Suspect]
     Indication: NON-SMALL CELL LUNG CANCER
     Dosage: 200MG/M2
     Route: 042
     Dates: start: 20070406, end: 20070406
  6. ZOFRAN [Concomitant]
     Route: 048
     Dates: start: 20070401
  7. FUROSEMIDE [Concomitant]
     Route: 048
     Dates: start: 20020101
  8. CP-751,871 [Suspect]
     Indication: NON-SMALL CELL LUNG CANCER
     Dosage: ALSO RECIEVED FROM 02AUG07 20MG/KG, TOTAL DAILY DOSE CYCLE 5 DAY 1 (C5D1) WAS 1325 MILLIGRAM.
     Route: 042
     Dates: start: 20070402, end: 20070406
  9. NYSTATIN [Concomitant]
     Route: 048
     Dates: start: 20070413, end: 20070417
  10. WARFARIN [Concomitant]
     Route: 048
     Dates: start: 20070309, end: 20070416
  11. CARBOPLATIN [Suspect]
     Indication: NON-SMALL CELL LUNG CANCER
     Route: 042
     Dates: start: 20070406, end: 20070406
  12. SPIRIVA [Concomitant]
     Dosage: 1 DOSAGE FORM = 1 PUFF
     Route: 055
     Dates: start: 20060101
  13. XOPENEX [Concomitant]
     Dosage: 1 DOSAGE FORM = 1-2 PUFFS
     Route: 055
     Dates: start: 20070309
  14. LANOXIN [Concomitant]
     Route: 048
     Dates: start: 20070403, end: 20070416
  15. ADVAIR DISKUS 100/50 [Concomitant]
     Dosage: 1 DOSAGE FORM =1 PUFF
     Route: 055
     Dates: start: 20050101
  16. AMBIEN [Concomitant]
     Route: 048
     Dates: start: 20070314

REACTIONS (3)
  - HYPONATRAEMIA [None]
  - SEPSIS [None]
  - CELLULITIS [None]
